FAERS Safety Report 11651712 (Version 2)
Quarter: 2018Q1

REPORT INFORMATION
  Report Type: Spontaneous
  Country: US (occurrence: US)
  Receive Date: 20151022
  Receipt Date: 20180228
  Transmission Date: 20180508
  Serious: Yes (Other)
  Sender: FDA-Public Use
  Company Number: US-ASTRAZENECA-2015SF01249

PATIENT
  Sex: Female

DRUGS (3)
  1. TUDORZA PRESSAIR [Suspect]
     Active Substance: ACLIDINIUM BROMIDE
     Route: 055
  2. MELOXICAM. [Concomitant]
     Active Substance: MELOXICAM
     Indication: LIMB INJURY
     Route: 048
     Dates: start: 201505
  3. LISINOPRIL HCTZ [Suspect]
     Active Substance: HYDROCHLOROTHIAZIDE\LISINOPRIL
     Indication: HYPERTENSION
     Dosage: DAILY
     Route: 048

REACTIONS (5)
  - Extra dose administered [Unknown]
  - Intentional product misuse [Unknown]
  - Drug dose omission [Unknown]
  - Limb injury [Unknown]
  - Product quality issue [Unknown]
